FAERS Safety Report 6060218-1 (Version None)
Quarter: 2009Q1

REPORT INFORMATION
  Report Type: 
  Country: None (occurrence: None)
  Receive Date: 20090129
  Receipt Date: 20090119
  Transmission Date: 20090719
  Serious: Yes (Death)
  Sender: FDA-Public Use
  Company Number: 1000003543

PATIENT
  Age: 15 Year
  Sex: Female

DRUGS (5)
  1. ESCITALOPRAM [Suspect]
     Indication: DEPRESSION
     Dosage: 20 MG (20 MG, 1 IN 1 D), ORAL, 10 MG, (10 MG, 1 IN 1 D), ORAL, 15 MG (15 MG, 1 IN  1 D), ORAL,
     Route: 048
     Dates: start: 20080414, end: 20080511
  2. ESCITALOPRAM [Suspect]
     Indication: DEPRESSION
     Dosage: 20 MG (20 MG, 1 IN 1 D), ORAL, 10 MG, (10 MG, 1 IN 1 D), ORAL, 15 MG (15 MG, 1 IN  1 D), ORAL,
     Route: 048
     Dates: start: 20080512, end: 20080515
  3. ESCITALOPRAM [Suspect]
     Indication: DEPRESSION
     Dosage: 20 MG (20 MG, 1 IN 1 D), ORAL, 10 MG, (10 MG, 1 IN 1 D), ORAL, 15 MG (15 MG, 1 IN  1 D), ORAL,
     Route: 048
     Dates: start: 20080516, end: 20080530
  4. LERGINAN [Concomitant]
  5. TRIOBE (TABLETS) [Concomitant]

REACTIONS (2)
  - COMPLETED SUICIDE [None]
  - DRUG INEFFECTIVE [None]
